FAERS Safety Report 9784100 (Version 1)
Quarter: 2013Q4

REPORT INFORMATION
  Report Type: Spontaneous
  Country: US (occurrence: US)
  Receive Date: 20131226
  Receipt Date: 20131226
  Transmission Date: 20140711
  Serious: Yes (Other)
  Sender: FDA-Public Use
  Company Number: US-PFIZER INC-2013366458

PATIENT
  Age: 87 Year
  Sex: Female
  Weight: 58.96 kg

DRUGS (3)
  1. PREMARIN [Suspect]
     Indication: BLADDER DISORDER
     Dosage: 2 G, 2X/WEEK
     Route: 067
  2. NORCO [Concomitant]
     Indication: ARTHRITIS
     Dosage: UNK, 1X/DAY
  3. SYNTHROID [Concomitant]
     Indication: HYPOTHYROIDISM
     Dosage: UNK

REACTIONS (2)
  - Hypertension [Unknown]
  - Intentional drug misuse [Unknown]
